FAERS Safety Report 8360589-7 (Version None)
Quarter: 2012Q1

REPORT INFORMATION
  Report Type: 
  Country: None (occurrence: None)
  Receive Date: 20120323
  Receipt Date: 20110404
  Transmission Date: 20120608
  Serious: Yes (Hospitalization)
  Sender: FDA-Public Use
  Company Number: 163-21880-11020480

PATIENT
  Age: 60 Year
  Sex: Male

DRUGS (22)
  1. REVLIMID [Suspect]
     Indication: MULTIPLE MYELOMA
     Dosage: SEE IMAGE
     Route: 048
     Dates: start: 20110204
  2. REVLIMID [Suspect]
     Indication: MULTIPLE MYELOMA
     Dosage: SEE IMAGE
     Route: 048
     Dates: start: 20071201, end: 20080101
  3. REVLIMID [Suspect]
     Indication: MULTIPLE MYELOMA
     Dosage: SEE IMAGE
     Route: 048
     Dates: start: 20100317, end: 20110202
  4. CALCIUM WITH VITAMIN D (CALCIUM WITH VITAMIN D) [Concomitant]
  5. VELCADE [Concomitant]
  6. ZOMETA [Concomitant]
  7. ATENOLOL [Concomitant]
  8. LEXAPRO [Concomitant]
  9. ACTONEL [Concomitant]
  10. PROTONIX [Concomitant]
  11. ULTRAM [Concomitant]
  12. PERCOCET [Concomitant]
  13. CELEBREX [Concomitant]
  14. ATIVAN [Concomitant]
  15. COUMADIN [Concomitant]
  16. AMOXICILLIN [Concomitant]
  17. NEURONTIN [Concomitant]
  18. METOPROLOL TARTRATE [Concomitant]
  19. SYNTHROID [Concomitant]
  20. DEXAMETHASONE [Concomitant]
  21. LASIX [Concomitant]
  22. POTASSIUM CHLORIDE [Concomitant]

REACTIONS (1)
  - PNEUMONIA [None]
